FAERS Safety Report 14632479 (Version 1)
Quarter: 2018Q1

REPORT INFORMATION
  Report Type: Spontaneous
  Country: US (occurrence: US)
  Receive Date: 20180313
  Receipt Date: 20180313
  Transmission Date: 20180509
  Serious: Yes (Other)
  Sender: FDA-Public Use
  Company Number: US-TEVA-2018-US-867442

PATIENT
  Age: 61 Year
  Sex: Female
  Weight: 70 kg

DRUGS (3)
  1. NEXIUM [Concomitant]
     Active Substance: ESOMEPRAZOLE MAGNESIUM
     Route: 065
  2. COPAXONE [Suspect]
     Active Substance: GLATIRAMER ACETATE
     Indication: MULTIPLE SCLEROSIS
     Dates: start: 2002
  3. LEXIPRO [Concomitant]
     Route: 065

REACTIONS (9)
  - Feeling abnormal [Unknown]
  - Injection site injury [Unknown]
  - Injection site rash [Recovered/Resolved]
  - Dry skin [Not Recovered/Not Resolved]
  - Embolia cutis medicamentosa [Not Recovered/Not Resolved]
  - Scab [Recovered/Resolved]
  - Contusion [Recovered/Resolved]
  - Injection site pruritus [Recovered/Resolved]
  - Nausea [Unknown]

NARRATIVE: CASE EVENT DATE: 201802
